FAERS Safety Report 5584551-2 (Version None)
Quarter: 2008Q1

REPORT INFORMATION
  Report Type: 
  Country: None (occurrence: None)
  Receive Date: 20080103
  Receipt Date: 20071219
  Transmission Date: 20080703
  Serious: Yes (Congenital Anomaly)
  Sender: FDA-Public Use
  Company Number: GXKR2007ZA10885

PATIENT
  Sex: Male

DRUGS (8)
  1. CO-TRIMOXAZOLE (NGX) (SULFAMETHOXAZOLE, TRIMETHOPRIM) [Suspect]
     Dosage: TRANSPLACENTAL
  2. ISONIAZID [Suspect]
     Dosage: TRANSPLACENTAL
  3. RIFAMPICIN [Suspect]
     Dosage: TRANSPLACENTAL
     Route: 064
  4. STAVUDINE [Suspect]
     Dosage: TRANSPLACENTAL
  5. LAMIVUDINE [Suspect]
     Dosage: TRANSPLACENTAL
     Route: 064
  6. NEVIRAPINE [Suspect]
     Dosage: TRANSPLACENTAL
     Route: 064
  7. PYRAZINAMIDE [Suspect]
     Dosage: TRANSPLACENTAL
     Route: 064
  8. ETHAMBUTOL HYDROCHLORIDE [Suspect]
     Dosage: TRANSPLACENTAL
     Route: 064

REACTIONS (3)
  - CEREBRAL VENTRICLE DILATATION [None]
  - DANDY-WALKER SYNDROME [None]
  - DRUG EXPOSURE DURING PREGNANCY [None]
